FAERS Safety Report 21722983 (Version 1)
Quarter: 2022Q4

REPORT INFORMATION
  Report Type: Report from Study
  Country: US (occurrence: US)
  Receive Date: 20221213
  Receipt Date: 20221213
  Transmission Date: 20230113
  Serious: No
  Sender: FDA-Public Use
  Company Number: US-ABBVIE-4196576

PATIENT
  Age: 30 Year
  Sex: Female

DRUGS (1)
  1. HUMIRA [Suspect]
     Active Substance: ADALIMUMAB
     Indication: Colitis ulcerative
     Route: 058

REACTIONS (5)
  - Diarrhoea [Unknown]
  - Gastric disorder [Recovering/Resolving]
  - Nausea [Unknown]
  - Decreased appetite [Unknown]
  - Pain [Unknown]

NARRATIVE: CASE EVENT DATE: 20221101
